FAERS Safety Report 11823636 (Version 1)
Quarter: 2015Q4

REPORT INFORMATION
  Report Type: Spontaneous
  Country: FR (occurrence: FR)
  Receive Date: 20151210
  Receipt Date: 20151210
  Transmission Date: 20160305
  Serious: Yes (Life-Threatening, Hospitalization, Disabling, Other)
  Sender: FDA-Public Use
  Company Number: FR-OTSUKA-2015_010478

PATIENT
  Age: 9 Year
  Sex: Female
  Weight: 26.1 kg

DRUGS (12)
  1. DACOGEN [Suspect]
     Active Substance: DECITABINE
     Indication: ACUTE MYELOID LEUKAEMIA
     Dosage: 20 MG/M2 TREATMENT LABEL IDENTIFIER: 10049-02
     Route: 042
     Dates: start: 20150720, end: 20150724
  2. VANCOMYCIN [Concomitant]
     Active Substance: VANCOMYCIN
     Indication: PYREXIA
     Dosage: 350 MG, 3 IN 1 DAY
     Route: 042
     Dates: start: 20150731
  3. CYTARABINE. [Suspect]
     Active Substance: CYTARABINE
     Indication: ACUTE MYELOID LEUKAEMIA
     Dosage: 2000 MG/M2, UNK
     Route: 065
     Dates: start: 20150727, end: 20150731
  4. ORACILLINE [Concomitant]
     Active Substance: PENICILLIN V
     Indication: INFECTION PROPHYLAXIS
     Dosage: 2 ML, 2 IN 1 DAY
     Route: 048
     Dates: start: 20150423
  5. LAROXYL [Concomitant]
     Active Substance: AMITRIPTYLINE
     Indication: DEPRESSED MOOD
     Dosage: 20 DOSE(S), IN 1 AS NECESSARY
     Route: 048
     Dates: start: 20150808
  6. TIENAM [Concomitant]
     Active Substance: CILASTATIN SODIUM\IMIPENEM
     Indication: ACUTE MYELOID LEUKAEMIA
     Dosage: 500 MG, 3 IN 1 DAY
     Route: 042
     Dates: start: 20150805
  7. PANTOPRAZOLE SODIUM. [Concomitant]
     Active Substance: PANTOPRAZOLE SODIUM
     Indication: PROPHYLAXIS AGAINST GASTROINTESTINAL ULCER
     Dosage: 25 MG, IN 1 DAY
     Route: 042
     Dates: start: 20150808
  8. DEXAMETHASONE. [Concomitant]
     Active Substance: DEXAMETHASONE
     Indication: ACUTE MYELOID LEUKAEMIA
     Dosage: 3 MG, 2 IN 1 DAY
     Route: 042
     Dates: start: 20150808
  9. CIFLOX [Concomitant]
     Active Substance: CIPROFLOXACIN
     Indication: PYREXIA
     Dosage: 120 MG, 3 IN 1 DAY
     Route: 042
     Dates: start: 20150806
  10. DEXAMETHASONE. [Concomitant]
     Active Substance: DEXAMETHASONE
     Indication: PYREXIA
     Dosage: 1 UNK, 2 IN 1 DAY
     Dates: start: 20150818
  11. POLARAMIN [Concomitant]
     Active Substance: DEXCHLORPHENIRAMINE MALEATE
     Indication: ANTIPYRESIS
     Dosage: 2.5 MG,1 IN 1 DAY
     Route: 042
     Dates: start: 20150730
  12. BACTRIM [Concomitant]
     Active Substance: SULFAMETHOXAZOLE\TRIMETHOPRIM
     Indication: INFECTION PROPHYLAXIS
     Dosage: 400 MG, 3 IN 1 WEEK
     Route: 048

REACTIONS (1)
  - Sepsis [Recovered/Resolved]

NARRATIVE: CASE EVENT DATE: 20150915
